FAERS Safety Report 7722411-9 (Version None)
Quarter: 2011Q3

REPORT INFORMATION
  Report Type: 
  Country: None (occurrence: None)
  Receive Date: 20110831
  Receipt Date: 20110822
  Transmission Date: 20111222
  Serious: Yes (Other)
  Sender: FDA-Public Use
  Company Number: US-ASTRAZENECA-2011SE46006

PATIENT
  Age: 60 Year
  Sex: Female

DRUGS (10)
  1. METAMUCIL-2 [Concomitant]
     Dosage: 1 GLASS PER DAY
  2. PRAVASTATIN [Concomitant]
  3. HYOSICAMINE [Concomitant]
     Dosage: AS NEEDED
  4. ALBUTEROL SULFATE AUTOHALER [Concomitant]
     Dosage: 2 PUFFS AS NEEDED
  5. NEXIUM [Suspect]
     Route: 048
  6. CORTISOL [Concomitant]
     Dosage: AS NEEDED
  7. OMEPRAZOLE [Suspect]
     Indication: DYSPEPSIA
     Route: 048
  8. OXYBUTYNINE [Concomitant]
     Dosage: 1-3 PER DAY
  9. CALMOSEPTINE [Concomitant]
     Dosage: AS NEEDED
  10. MICONIZOLE [Concomitant]
     Dosage: AS NEEDED

REACTIONS (5)
  - SALIVARY GLAND NEOPLASM [None]
  - NEOPLASM [None]
  - HYPOKINESIA [None]
  - DRUG EFFECT DECREASED [None]
  - DRUG DOSE OMISSION [None]
